FAERS Safety Report 24612622 (Version 1)
Quarter: 2024Q4

REPORT INFORMATION
  Report Type: Spontaneous
  Country: AU (occurrence: AU)
  Receive Date: 20241113
  Receipt Date: 20241113
  Transmission Date: 20250114
  Serious: Yes (Death)
  Sender: MYLAN
  Company Number: AU-MYLANLABS-2024M1102274

PATIENT
  Age: 89 Year
  Sex: Female

DRUGS (1)
  1. CLOZARIL [Suspect]
     Active Substance: CLOZAPINE
     Indication: Schizophrenia
     Dosage: 50 MILLIGRAM
     Route: 048
     Dates: start: 20170816

REACTIONS (1)
  - Death [Fatal]

NARRATIVE: CASE EVENT DATE: 20241108
